FAERS Safety Report 8611372-6 (Version None)
Quarter: 2012Q3

REPORT INFORMATION
  Report Type: 
  Country: None (occurrence: None)
  Receive Date: 20120822
  Receipt Date: 20120807
  Transmission Date: 20120928
  Serious: Yes (Death)
  Sender: FDA-Public Use
  Company Number: US-MYLANLABS-2011S1005710

PATIENT
  Age: 36 Year
  Sex: Female
  Weight: 76.66 kg

DRUGS (7)
  1. GABAPENTIN [Concomitant]
  2. TRAMADOL HCL [Concomitant]
  3. AMOXICILLIN [Concomitant]
     Dates: start: 20081101
  4. HYDROCODONE BITARTRATE AND ACETAMINOPHEN [Concomitant]
     Dosage: 10MG/650MG
  5. LEVOTHYROXINE SODIUM [Concomitant]
  6. EFFEXOR XR [Concomitant]
  7. FENTANYL-100 [Suspect]
     Indication: BACK PAIN
     Dosage: Q3D
     Route: 062
     Dates: start: 20081101, end: 20081124

REACTIONS (1)
  - TOXICITY TO VARIOUS AGENTS [None]
